FAERS Safety Report 13311968 (Version 1)
Quarter: 2017Q1

REPORT INFORMATION
  Report Type: Spontaneous
  Country: US (occurrence: US)
  Receive Date: 20170309
  Receipt Date: 20170309
  Transmission Date: 20170428
  Serious: No
  Sender: FDA-Public Use
  Company Number: US-TEVA-727698ACC

PATIENT
  Sex: Male

DRUGS (2)
  1. MUCUS ER MAX [Suspect]
     Active Substance: GUAIFENESIN
     Indication: PRODUCT USED FOR UNKNOWN INDICATION
     Dosage: THREE TIMES
     Route: 048
     Dates: start: 2016, end: 2016
  2. MUCUS ER [Suspect]
     Active Substance: GUAIFENESIN
     Dosage: SINGLE
     Route: 048
     Dates: start: 20161214, end: 20161214

REACTIONS (3)
  - Retching [Recovered/Resolved]
  - Wrong technique in product usage process [Unknown]
  - Wrong technique in product usage process [None]

NARRATIVE: CASE EVENT DATE: 2016
